FAERS Safety Report 5170279-X (Version None)
Quarter: 2006Q4

REPORT INFORMATION
  Report Type: 
  Country: None (occurrence: None)
  Receive Date: 20061204
  Receipt Date: 20061120
  Transmission Date: 20070319
  Serious: Yes (Hospitalization)
  Sender: FDA-Public Use
  Company Number: 2006AL003636

PATIENT
  Age: 71 Year
  Sex: Female

DRUGS (10)
  1. METFORMIN HYDROCHLORIDE TABLETS, 500 MG (PUREPAC) [Suspect]
     Dosage: 500 MG;TID;UNKNOWN
  2. GABAPENTIN [Concomitant]
  3. ASPIRIN [Concomitant]
  4. BENDROFLUAZIDE [Concomitant]
  5. DOXAZOSIN MESYLATE [Concomitant]
  6. LISINOPRIL [Concomitant]
  7. OMEPRAZOLE [Concomitant]
  8. QUININE SULFATE [Concomitant]
  9. SIMVASTATIN [Concomitant]
  10. DILTIAZEM HCL [Concomitant]

REACTIONS (1)
  - RENAL FAILURE ACUTE [None]
